FAERS Safety Report 10332094 (Version 1)
Quarter: 2014Q3

REPORT INFORMATION
  Report Type: Spontaneous
  Country: US (occurrence: None)
  Receive Date: 20140721
  Receipt Date: 20140721
  Transmission Date: 20150326
  Serious: Yes (Hospitalization)
  Sender: FDA-Public Use
  Company Number: None

PATIENT
  Age: 50 Year
  Sex: Male

DRUGS (1)
  1. AVELOX [Suspect]
     Active Substance: MOXIFLOXACIN HYDROCHLORIDE
     Indication: SINUSITIS
     Dosage: 1 PILL , ONCE DAILY, TAKEN BY MOUTH
     Route: 048
     Dates: start: 20140613, end: 20140622

REACTIONS (3)
  - VIIth nerve paralysis [None]
  - Dysphemia [None]
  - Muscular weakness [None]

NARRATIVE: CASE EVENT DATE: 20140622
